FAERS Safety Report 24277419 (Version 1)
Quarter: 2024Q3

REPORT INFORMATION
  Report Type: Report from Study
  Country: US (occurrence: US)
  Receive Date: 20240903
  Receipt Date: 20240903
  Transmission Date: 20241017
  Serious: Yes (Other)
  Sender: GILEAD
  Company Number: US-GILEAD-2024-0685969

PATIENT
  Sex: Male

DRUGS (1)
  1. AZTREONAM LYSINE [Suspect]
     Active Substance: AZTREONAM LYSINE
     Indication: Pseudomonas infection
     Dosage: UNK
     Route: 065

REACTIONS (4)
  - Chronic respiratory failure [Unknown]
  - Bronchiectasis [Unknown]
  - Productive cough [Unknown]
  - Off label use [Unknown]
